FAERS Safety Report 26217531 (Version 1)
Quarter: 2025Q4

REPORT INFORMATION
  Report Type: Spontaneous
  Country: US (occurrence: US)
  Receive Date: 20251231
  Receipt Date: 20251231
  Transmission Date: 20260117
  Serious: Yes (Hospitalization)
  Sender: STRIDES
  Company Number: None

PATIENT
  Age: 77 Year
  Sex: Female
  Weight: 105.1 kg

DRUGS (2)
  1. VANCOMYCIN [Suspect]
     Active Substance: VANCOMYCIN
     Indication: Vascular device infection
     Dosage: CONTINUOUS, IN SITU-TARGETED, ULTRAHIGH-CONCENTRATION ANTIBIOTIC (CITA) USING HIGH DOSE
     Route: 065
  2. GENTAMICIN [Concomitant]
     Active Substance: GENTAMICIN
     Indication: Vascular device infection
     Dosage: HIGH DOSE
     Route: 065

REACTIONS (3)
  - Drug level above therapeutic [Unknown]
  - Renal impairment [Recovered/Resolved]
  - Off label use [Unknown]
